FAERS Safety Report 6235082-8 (Version None)
Quarter: 2009Q2

REPORT INFORMATION
  Report Type: 
  Country: None (occurrence: None)
  Receive Date: 20090618
  Receipt Date: 20090609
  Transmission Date: 20091009
  Serious: No
  Sender: FDA-Public Use
  Company Number: PHEH2009US05984

PATIENT
  Sex: Male

DRUGS (12)
  1. TASIGNA [Suspect]
     Indication: CHRONIC MYELOID LEUKAEMIA
     Dosage: 400 MG, Q12H
     Dates: start: 20090201
  2. PROTONIX [Concomitant]
  3. ASPIRIN [Concomitant]
  4. CENTRUM [Concomitant]
  5. HUMALOG [Concomitant]
  6. LANTUS [Concomitant]
  7. OXYCONTIN [Concomitant]
  8. TEMAZEPAM [Concomitant]
  9. TRAZODONE HCL [Concomitant]
  10. AMLODIPINE [Concomitant]
  11. COREG [Concomitant]
  12. LISINOPRIL [Concomitant]

REACTIONS (1)
  - MEDICATION ERROR [None]
